FAERS Safety Report 20308697 (Version 8)
Quarter: 2022Q2

REPORT INFORMATION
  Report Type: Report from Study
  Country: None (occurrence: ES)
  Receive Date: 20220107
  Receipt Date: 20220504
  Transmission Date: 20220720
  Serious: Yes (Other)
  Sender: FDA-Public Use
  Company Number: ES-AKCEA THERAPEUTICS, INC.-2021IS001924

PATIENT
  Age: 54 Year
  Sex: Female

DRUGS (4)
  1. TEGSEDI [Suspect]
     Active Substance: INOTERSEN SODIUM
     Indication: Amyloidosis
     Route: 058
     Dates: start: 20211129, end: 20211217
  2. DEVICE [Suspect]
     Active Substance: DEVICE
  3. TEGSEDI [Suspect]
     Active Substance: INOTERSEN SODIUM
     Route: 058
  4. ACETAMINOPHEN [Concomitant]
     Active Substance: ACETAMINOPHEN
     Route: 065

REACTIONS (27)
  - Expired product administered [Recovered/Resolved]
  - Myalgia [Not Recovered/Not Resolved]
  - Chills [Recovered/Resolved]
  - Adverse drug reaction [Not Recovered/Not Resolved]
  - Paraesthesia [Recovered/Resolved]
  - Sensation of foreign body [Not Recovered/Not Resolved]
  - Red blood cell count decreased [Recovered/Resolved]
  - Mean cell volume increased [Recovered/Resolved]
  - Mean cell haemoglobin concentration decreased [Not Recovered/Not Resolved]
  - Blood glucose increased [Unknown]
  - Lipase increased [Unknown]
  - Blood cholesterol increased [Unknown]
  - Urine ketone body present [Unknown]
  - Microalbuminuria [Unknown]
  - Vitamin D deficiency [Unknown]
  - Protein urine present [Unknown]
  - Decreased appetite [Not Recovered/Not Resolved]
  - Gamma-glutamyltransferase increased [Unknown]
  - Blood lactate dehydrogenase increased [Unknown]
  - Blood calcium increased [Unknown]
  - Low density lipoprotein increased [Unknown]
  - Creatinine urine decreased [Unknown]
  - Blood potassium increased [Unknown]
  - Secretion discharge [Unknown]
  - Malaise [Unknown]
  - COVID-19 [Unknown]
  - Fatigue [Unknown]

NARRATIVE: CASE EVENT DATE: 20211101
